FAERS Safety Report 9656070 (Version 3)
Quarter: 2014Q1

REPORT INFORMATION
  Report Type: Spontaneous
  Country: US (occurrence: US)
  Receive Date: 20131030
  Receipt Date: 20140314
  Transmission Date: 20141002
  Serious: Yes (Hospitalization)
  Sender: FDA-Public Use
  Company Number: US-JNJFOC-20131015242

PATIENT
  Sex: 0

DRUGS (10)
  1. INFLIXIMAB, RECOMBINANT [Suspect]
     Indication: UVEITIS
     Route: 042
  2. INFLIXIMAB, RECOMBINANT [Suspect]
     Indication: UVEITIS
     Dosage: HIGH DOSE GREATER THAN OR EQUAL TO 10 MG/KG
     Route: 042
     Dates: start: 20100125, end: 20120510
  3. INFLIXIMAB, RECOMBINANT [Suspect]
     Indication: JUVENILE IDIOPATHIC ARTHRITIS
     Route: 042
  4. INFLIXIMAB, RECOMBINANT [Suspect]
     Indication: JUVENILE IDIOPATHIC ARTHRITIS
     Dosage: HIGH DOSE GREATER THAN OR EQUAL TO 10 MG/KG
     Route: 042
     Dates: start: 20100125, end: 20120510
  5. SEASONIQUE [Concomitant]
     Route: 065
  6. HUMALOG [Concomitant]
     Route: 065
  7. SYNTHROID [Concomitant]
     Route: 065
  8. LANTUS [Concomitant]
     Route: 065
  9. LEFLUNOMIDE [Concomitant]
     Route: 065
  10. ZOLOFT [Concomitant]
     Route: 065

REACTIONS (2)
  - Diabetic ketoacidosis [Unknown]
  - Off label use [Unknown]
